FAERS Safety Report 18056107 (Version 2)
Quarter: 2020Q3

REPORT INFORMATION
  Report Type: Spontaneous
  Country: GB (occurrence: GB)
  Receive Date: 20200722
  Receipt Date: 20200806
  Transmission Date: 20201103
  Serious: Yes (Hospitalization, Other)
  Sender: FDA-Public Use
  Company Number: GB-JNJFOC-20200725751

PATIENT
  Age: 75 Year
  Sex: Male

DRUGS (8)
  1. LACTULOSE. [Concomitant]
     Active Substance: LACTULOSE
     Indication: PRODUCT USED FOR UNKNOWN INDICATION
     Dosage: BID (3.4G/5ML SOLUTION)
     Route: 048
  2. LANSOPRAZOLE. [Suspect]
     Active Substance: LANSOPRAZOLE
     Indication: HORMONE-REFRACTORY PROSTATE CANCER
     Dosage: DRUG START PERIOD: 51 (MONTHS)?ADDITIONAL INFO: MISUSE,MEDICATION ERROR?30 MG, QD
     Route: 048
     Dates: start: 2015
  3. PARACETAMOL [Suspect]
     Active Substance: ACETAMINOPHEN
     Indication: PAIN
     Dosage: DRUG START PERIOD: 672 (DAYS)?ADDITIONAL INFO: MEDICATION ERROR,MISUSE
     Route: 048
     Dates: start: 20170606
  4. CLEXANE [Suspect]
     Active Substance: ENOXAPARIN SODIUM
     Dosage: 100 MG, QD (2 SEPARATE DOSES?DRUG START PERIOD: 2282 (DAYS)?ADDITIONAL INFO: MEDICATION ERROR,MISUSE
     Route: 058
     Dates: start: 20190410
  5. CLEXANE [Suspect]
     Active Substance: ENOXAPARIN SODIUM
     Indication: THROMBOSIS PROPHYLAXIS
     Dosage: DRUG START PERIOD: 2282 (DAYS)?DRUG LAST PERIOD: 4 (DAYS)?ADDITIONAL INFO: MEDICATION ERROR,MISUSE
     Route: 058
     Dates: start: 2013, end: 20190405
  6. TAMSULOSIN HYDROCHLORIDE. [Suspect]
     Active Substance: TAMSULOSIN HYDROCHLORIDE
     Indication: HORMONE-REFRACTORY PROSTATE CANCER
     Dosage: 400 MG, QD?DRUG START PERIOD: 4837 (DAYS)?ADDITIONAL INFO: MEDICATION ERROR,MISUSE
     Route: 048
     Dates: start: 2006
  7. DOXAZOSIN MESILATE [Suspect]
     Active Substance: DOXAZOSIN MESYLATE
     Indication: HORMONE-REFRACTORY PROSTATE CANCER
     Dosage: 4 MG, QD?DRUG START PERIOD: 2282 (DAYS)?ADDITIONAL INFO: MISUSE,MEDICATION ERROR
     Route: 048
     Dates: start: 2013
  8. DEXAMETHASONE. [Suspect]
     Active Substance: DEXAMETHASONE
     Indication: HORMONE-REFRACTORY PROSTATE CANCER
     Dosage: 0.5 MG, QD?ADDITIONAL INFO: MISUSE,MEDICATION ERROR?DRUG START PERIOD: 1552 (DAYS)
     Route: 048
     Dates: start: 2015

REACTIONS (8)
  - Staphylococcal infection [Unknown]
  - Hydronephrosis [Unknown]
  - Haemoglobin decreased [Unknown]
  - Adrenocortical insufficiency acute [Unknown]
  - Haematuria [Recovered/Resolved]
  - Blood disorder [Unknown]
  - Stent placement [Unknown]
  - Venous thrombosis limb [Unknown]

NARRATIVE: CASE EVENT DATE: 20190311
